FAERS Safety Report 18413341 (Version 1)
Quarter: 2020Q4

REPORT INFORMATION
  Report Type: Spontaneous
  Country: GB (occurrence: GB)
  Receive Date: 20201022
  Receipt Date: 20201022
  Transmission Date: 20210114
  Serious: Yes (Other)
  Sender: FDA-Public Use
  Company Number: GB-BIOCON-BCN-2020-001299

PATIENT
  Age: 70 Year
  Sex: Female
  Weight: 55 kg

DRUGS (3)
  1. PERINDOPRIL [Concomitant]
     Active Substance: PERINDOPRIL
     Indication: PRODUCT USED FOR UNKNOWN INDICATION
     Dates: start: 20150301
  2. FELODIPINE. [Concomitant]
     Active Substance: FELODIPINE
     Indication: PRODUCT USED FOR UNKNOWN INDICATION
     Dates: start: 20150301
  3. ROSUVASTATIN CALCIUM. [Suspect]
     Active Substance: ROSUVASTATIN CALCIUM
     Indication: BLOOD CHOLESTEROL INCREASED
     Route: 048
     Dates: start: 20200826, end: 20200928

REACTIONS (3)
  - Muscle spasms [Not Recovered/Not Resolved]
  - Alopecia [Not Recovered/Not Resolved]
  - Fatigue [Not Recovered/Not Resolved]

NARRATIVE: CASE EVENT DATE: 20200828
